FAERS Safety Report 10886534 (Version 2)
Quarter: 2015Q2

REPORT INFORMATION
  Report Type: Spontaneous
  Country: US (occurrence: US)
  Receive Date: 20150304
  Receipt Date: 20150427
  Transmission Date: 20150821
  Serious: No
  Sender: FDA-Public Use
  Company Number: US-ELI_LILLY_AND_COMPANY-US201502007032

PATIENT
  Age: 53 Year
  Sex: Male

DRUGS (3)
  1. HUMALOG [Suspect]
     Active Substance: INSULIN LISPRO
     Indication: TYPE 2 DIABETES MELLITUS
     Dosage: 8 U, OTHER
     Route: 065
     Dates: start: 2009
  2. LANTUS [Concomitant]
     Active Substance: INSULIN GLARGINE
  3. HUMALOG [Suspect]
     Active Substance: INSULIN LISPRO
     Indication: TYPE 1 DIABETES MELLITUS
     Dosage: 8 U, OTHER
     Route: 065
     Dates: start: 2009

REACTIONS (4)
  - Rotator cuff syndrome [Unknown]
  - Injection site pain [Unknown]
  - Blood glucose increased [Unknown]
  - Arthritis [Unknown]

NARRATIVE: CASE EVENT DATE: 201403
